FAERS Safety Report 9683474 (Version 2)
Quarter: 2013Q4

REPORT INFORMATION
  Report Type: Report from Study
  Country: DK (occurrence: DK)
  Receive Date: 20131112
  Receipt Date: 20131112
  Transmission Date: 20140711
  Serious: Yes (Hospitalization)
  Sender: FDA-Public Use
  Company Number: DK-ABBVIE-12P-044-1022320-00

PATIENT
  Age: 68 Year
  Sex: Male
  Weight: 90 kg

DRUGS (3)
  1. HUMIRA [Suspect]
     Indication: CROHN^S DISEASE
     Route: 058
     Dates: start: 20080617, end: 20121030
  2. SALUTEC [Concomitant]
     Indication: HYPERTENSION
     Dosage: 1/2 TABLET ONCE  DAY
  3. SIFROL [Concomitant]
     Indication: HYPERTENSION

REACTIONS (2)
  - Respiratory disorder [Recovered/Resolved]
  - Atrial fibrillation [Recovered/Resolved]
